FAERS Safety Report 8626048-9 (Version None)
Quarter: 2012Q3

REPORT INFORMATION
  Report Type: 
  Country: None (occurrence: None)
  Receive Date: 20120827
  Receipt Date: 20120823
  Transmission Date: 20120928
  Serious: Yes (Death, Congenital Anomaly)
  Sender: FDA-Public Use
  Company Number: US-ABBOTT-12P-163-0964686-00

PATIENT

DRUGS (2)
  1. COMBIVIR [Suspect]
     Indication: MATERNAL EXPOSURE TIMING UNSPECIFIED
     Route: 064
  2. KALETRA [Suspect]
     Indication: MATERNAL EXPOSURE TIMING UNSPECIFIED
     Route: 064

REACTIONS (5)
  - ULTRASOUND SCAN ABNORMAL [None]
  - ABORTION INDUCED [None]
  - FOETAL EXPOSURE DURING PREGNANCY [None]
  - MENINGOMYELOCELE [None]
  - TALIPES [None]
